FAERS Safety Report 16839158 (Version 1)
Quarter: 2019Q3

REPORT INFORMATION
  Report Type: Spontaneous
  Country: US (occurrence: US)
  Receive Date: 20190731
  Receipt Date: 20190731
  Transmission Date: 20191005
  Serious: Yes (Hospitalization)
  Sender: FDA-Public Use
  Company Number: None

PATIENT
  Age: 82 Year
  Sex: Female
  Weight: 79.1 kg

DRUGS (9)
  1. FASLODEX [Suspect]
     Active Substance: FULVESTRANT
     Dates: end: 20190712
  2. PRAZOSIN. [Concomitant]
     Active Substance: PRAZOSIN
  3. ROPINIROLE. [Concomitant]
     Active Substance: ROPINIROLE
  4. PAXIL [Concomitant]
     Active Substance: PAROXETINE HYDROCHLORIDE
  5. SPIRONOLACTONE. [Concomitant]
     Active Substance: SPIRONOLACTONE
  6. SYNTHROID [Concomitant]
     Active Substance: LEVOTHYROXINE SODIUM
  7. LIPITOR [Concomitant]
     Active Substance: ATORVASTATIN CALCIUM
  8. LUNESTA [Concomitant]
     Active Substance: ESZOPICLONE
  9. PALBOCICLIB [Concomitant]
     Active Substance: PALBOCICLIB

REACTIONS (2)
  - Oxygen saturation decreased [None]
  - Cardiac arrest [None]

NARRATIVE: CASE EVENT DATE: 20190722
